FAERS Safety Report 5408758-X (Version None)
Quarter: 2007Q3

REPORT INFORMATION
  Report Type: 
  Country: None (occurrence: None)
  Receive Date: 20070808
  Receipt Date: 20070802
  Transmission Date: 20080115
  Serious: Yes (Hospitalization)
  Sender: FDA-Public Use
  Company Number: B0482432A

PATIENT
  Age: 54 Year
  Sex: Female

DRUGS (2)
  1. CLAVULIN [Suspect]
     Indication: LYMPHANGITIS
     Dosage: 2G PER DAY
     Route: 048
     Dates: start: 20070529, end: 20070705
  2. TIBOLONE [Suspect]
     Indication: MENOPAUSE
     Dosage: 2.5MG PER DAY
     Route: 048
     Dates: start: 20050101, end: 20070629

REACTIONS (3)
  - ALANINE AMINOTRANSFERASE INCREASED [None]
  - ASPARTATE AMINOTRANSFERASE INCREASED [None]
  - PHLEBITIS [None]
